FAERS Safety Report 24922733 (Version 2)
Quarter: 2025Q2

REPORT INFORMATION
  Report Type: Spontaneous
  Country: US (occurrence: US)
  Receive Date: 20250204
  Receipt Date: 20250422
  Transmission Date: 20250717
  Serious: No
  Sender: BAUSCH AND LOMB
  Company Number: US-BAUSCH-BL-2025-001327

PATIENT
  Age: 81 Year
  Sex: Female

DRUGS (1)
  1. TRULANCE [Suspect]
     Active Substance: PLECANATIDE
     Indication: Constipation
     Route: 048
     Dates: start: 2017

REACTIONS (2)
  - Blood sodium decreased [Unknown]
  - Therapeutic product effect incomplete [Unknown]
